FAERS Safety Report 25382368 (Version 2)
Quarter: 2025Q2

REPORT INFORMATION
  Report Type: Spontaneous
  Country: FR (occurrence: FR)
  Receive Date: 20250601
  Receipt Date: 20250621
  Transmission Date: 20250717
  Serious: Yes (Hospitalization, Other)
  Sender: AUROBINDO
  Company Number: FR-AFSSAPS-AVMP2025000114

PATIENT
  Age: 32 Year
  Sex: Male

DRUGS (2)
  1. DIAZEPAM [Suspect]
     Active Substance: DIAZEPAM
     Indication: Product used for unknown indication
     Route: 065
     Dates: start: 20250507
  2. CYAMEMAZINE [Suspect]
     Active Substance: CYAMEMAZINE
     Indication: Product used for unknown indication
     Route: 065
     Dates: start: 20250507

REACTIONS (3)
  - Substance use disorder [Unknown]
  - Drug use disorder [Recovered/Resolved]
  - Coma [Recovered/Resolved]

NARRATIVE: CASE EVENT DATE: 20250507
